FAERS Safety Report 5002235-6 (Version None)
Quarter: 2006Q2

REPORT INFORMATION
  Report Type: 
  Country: None (occurrence: None)
  Receive Date: 20060502
  Receipt Date: 20060418
  Transmission Date: 20061013
  Serious: Yes (Other)
  Sender: FDA-Public Use
  Company Number: 2006-141592-NL

PATIENT
  Age: 76 Year
  Sex: Male

DRUGS (1)
  1. TICE BCG [Suspect]
     Indication: BLADDER CANCER
     Dosage: CFU INTRAVESICAL
     Route: 043

REACTIONS (4)
  - GLOMERULONEPHRITIS PROLIFERATIVE [None]
  - GRANULOMA [None]
  - NEPHRITIS INTERSTITIAL [None]
  - TRANSITIONAL CELL CANCER OF THE RENAL PELVIS AND URETER [None]
